FAERS Safety Report 25882842 (Version 2)
Quarter: 2025Q4

REPORT INFORMATION
  Report Type: Spontaneous
  Country: US (occurrence: US)
  Receive Date: 20251006
  Receipt Date: 20251214
  Transmission Date: 20260117
  Serious: Yes (Hospitalization, Other)
  Sender: AMNEAL
  Company Number: US-AMNEAL-2025-AMRX-03789

PATIENT
  Age: 60 Year
  Sex: Female

DRUGS (2)
  1. BACLOFEN [Suspect]
     Active Substance: BACLOFEN
     Indication: Product used for unknown indication
     Dosage: 0.5 MILLIGRAM PER MILLILITRE, 241.13 MCG/ML
     Route: 037
  2. BACLOFEN [Suspect]
     Active Substance: BACLOFEN
     Indication: Product used for unknown indication
     Dosage: UNK
     Route: 048

REACTIONS (7)
  - Toxicity to various agents [Unknown]
  - Volvulus [Unknown]
  - Urinary tract infection [Unknown]
  - Hallucination, auditory [Unknown]
  - Illness [Unknown]
  - Muscle twitching [Unknown]
  - Drug effect less than expected [Unknown]

NARRATIVE: CASE EVENT DATE: 20250923
